FAERS Safety Report 23752735 (Version 2)
Quarter: 2024Q2

REPORT INFORMATION
  Report Type: Report from Study
  Country: KR (occurrence: KR)
  Receive Date: 20240417
  Receipt Date: 20240426
  Transmission Date: 20240716
  Serious: Yes (Hospitalization, Other)
  Sender: FDA-Public Use
  Company Number: KR-TAKEDA-2024TUS034850

PATIENT
  Age: 85 Year
  Sex: Female
  Weight: 60.4 kg

DRUGS (5)
  1. MOBOCERTINIB [Suspect]
     Active Substance: MOBOCERTINIB
     Indication: Non-small cell lung cancer
     Dosage: 80 MILLIGRAM, QD
     Route: 048
     Dates: start: 20221228
  2. MOBOCERTINIB [Suspect]
     Active Substance: MOBOCERTINIB
     Indication: EGFR gene mutation
     Dosage: 80 MILLIGRAM
     Route: 048
     Dates: end: 20231108
  3. DEXAMETHASONE [Concomitant]
     Active Substance: DEXAMETHASONE
     Indication: Prophylaxis
     Dosage: 5 MILLIGRAM, TID
     Route: 042
     Dates: start: 20231108
  4. MANNITOL [Concomitant]
     Active Substance: MANNITOL
     Indication: Reduction of increased intracranial pressure
     Dosage: 600 MILLILITER
     Route: 042
     Dates: start: 20231108
  5. MEGACE F [Concomitant]
     Dosage: 5 MILLILITER
     Route: 048
     Dates: start: 20230329, end: 20231108

REACTIONS (8)
  - Non-small cell lung cancer [Not Recovered/Not Resolved]
  - Metastases to central nervous system [Not Recovered/Not Resolved]
  - Hemiparesis [Not Recovered/Not Resolved]
  - Paronychia [Recovered/Resolved]
  - Stomatitis [Recovered/Resolved]
  - Asthenia [Unknown]
  - Decreased appetite [Recovered/Resolved]
  - Therapy partial responder [Unknown]

NARRATIVE: CASE EVENT DATE: 20230111
